FAERS Safety Report 5562710-2 (Version None)
Quarter: 2007Q4

REPORT INFORMATION
  Report Type: 
  Country: None (occurrence: None)
  Receive Date: 20071211
  Receipt Date: 20071211
  Transmission Date: 20080405
  Serious: Yes (Hospitalization)
  Sender: FDA-Public Use
  Company Number: None

PATIENT
  Sex: Female
  Weight: 63.6 kg

DRUGS (4)
  1. ERLOTINIB - 150MG - GENETECH [Suspect]
     Indication: NON-SMALL CELL LUNG CANCER
     Dosage: 150MG ORALLY QD
     Route: 048
     Dates: start: 20070918, end: 20071126
  2. DASATINIB - 50MG - BRISTOL-MYERS SQUIBB [Suspect]
     Indication: NON-SMALL CELL LUNG CANCER
     Dosage: 70MG ORALLY BID
     Route: 048
     Dates: start: 20070926, end: 20071126
  3. ETODOLAC [Concomitant]
  4. NAPROSYN [Concomitant]

REACTIONS (5)
  - ANAEMIA [None]
  - DIARRHOEA [None]
  - ENTEROCOLITIS INFECTIOUS [None]
  - GASTROENTERITIS [None]
  - LOWER GASTROINTESTINAL HAEMORRHAGE [None]
